FAERS Safety Report 6116495-1 (Version None)
Quarter: 2009Q1

REPORT INFORMATION
  Report Type: 
  Country: None (occurrence: None)
  Receive Date: 20090314
  Receipt Date: 20081215
  Transmission Date: 20090719
  Serious: No
  Sender: FDA-Public Use
  Company Number: US-ABBOTT-08P-163-0493049-00

PATIENT
  Sex: Male
  Weight: 90.8 kg

DRUGS (6)
  1. HUMIRA [Suspect]
     Indication: CROHN'S DISEASE
     Dates: start: 20080701
  2. HUMIRA [Suspect]
  3. HUMIRA [Suspect]
  4. LOMOTIL [Concomitant]
     Indication: DIARRHOEA
  5. FIBER [Concomitant]
     Indication: DRUG USE FOR UNKNOWN INDICATION
  6. ANACID [Concomitant]
     Indication: ANTACID THERAPY

REACTIONS (2)
  - DRUG DELIVERY SYSTEM MALFUNCTION [None]
  - INCORRECT DOSE ADMINISTERED [None]
